FAERS Safety Report 11873782 (Version 2)
Quarter: 2016Q2

REPORT INFORMATION
  Report Type: Spontaneous
  Country: IT (occurrence: IT)
  Receive Date: 20151229
  Receipt Date: 20160415
  Transmission Date: 20160815
  Serious: Yes (Other)
  Sender: FDA-Public Use
  Company Number: IT-TEVA-620273ACC

PATIENT
  Sex: Female

DRUGS (2)
  1. CAPECITABINA ACCORD - ACCORD HEALTHCARE LIMITED [Suspect]
     Active Substance: CAPECITABINE
     Indication: COLON CANCER
     Dosage: 2500 MG CYCLICAL
     Route: 048
     Dates: start: 20151027, end: 20151217
  2. OXALIPLATIN. [Suspect]
     Active Substance: OXALIPLATIN
     Indication: PRODUCT USED FOR UNKNOWN INDICATION
     Dosage: 160 MG CYCLICAL
     Route: 042
     Dates: start: 20151027, end: 20151217

REACTIONS (1)
  - Neutrophilia [Recovered/Resolved]

NARRATIVE: CASE EVENT DATE: 20151123
